FAERS Safety Report 9312781 (Version 1)
Quarter: 2013Q2

REPORT INFORMATION
  Report Type: Spontaneous
  Country: IT (occurrence: IT)
  Receive Date: 20130528
  Receipt Date: 20130528
  Transmission Date: 20140414
  Serious: Yes (Hospitalization)
  Sender: FDA-Public Use
  Company Number: IT-009507513-1305ITA013128

PATIENT
  Age: 55 Year
  Sex: Female

DRUGS (5)
  1. REMERON [Suspect]
     Indication: DEPRESSION
     Dosage: 30 MG, QD
     Route: 048
     Dates: start: 20060101, end: 20130412
  2. SERENASE [Suspect]
     Indication: DEPRESSION
     Dosage: 15 DROPS DAILY
     Route: 048
     Dates: start: 20130411, end: 20130412
  3. TAVOR [Suspect]
     Indication: DEPRESSION
     Dosage: 2 POSOLOGICAL UNIT
     Route: 048
     Dates: start: 20060101, end: 20130412
  4. ACETYL SALICYLIC ACID [Concomitant]
     Dosage: 100 MG, UNK
     Route: 048
     Dates: start: 20060101
  5. RAMIPRIL [Concomitant]
     Dosage: UNK
     Route: 048
     Dates: start: 20000101

REACTIONS (2)
  - Speech disorder [Recovering/Resolving]
  - Paraesthesia [Recovering/Resolving]
